FAERS Safety Report 15424639 (Version 7)
Quarter: 2019Q1

REPORT INFORMATION
  Report Type: Report from Study
  Country: None (occurrence: BE)
  Receive Date: 20180925
  Receipt Date: 20190318
  Transmission Date: 20190417
  Serious: Yes (Hospitalization, Other)
  Sender: FDA-Public Use
  Company Number: BE-ABBVIE-18S-013-2494847-00

PATIENT
  Age: 79 Year
  Sex: Female

DRUGS (4)
  1. DUODOPA [Suspect]
     Active Substance: CARBIDOPA\LEVODOPA
     Dosage: MD= 3.3ML?CD= 2.9ML/HR DURING 16HRS?ED= 2ML
     Route: 050
     Dates: start: 20180920, end: 20180921
  2. DUODOPA [Suspect]
     Active Substance: CARBIDOPA\LEVODOPA
     Dosage: MD=3.2ML CD=3.1ML/HR DURING 16HRS ED=1ML
     Route: 050
     Dates: start: 20180921, end: 20190312
  3. DUODOPA [Suspect]
     Active Substance: CARBIDOPA\LEVODOPA
     Indication: PARKINSON^S DISEASE
     Dosage: MD= 4ML?CD= 3.2ML/HR DURING 16HRS ?ED= 2ML
     Route: 050
     Dates: start: 20180917, end: 20180920
  4. DUODOPA [Suspect]
     Active Substance: CARBIDOPA\LEVODOPA
     Dosage: MD=3MLCD=2.6ML/HR DURING 16HRS ED=1ML
     Route: 050
     Dates: start: 20190312

REACTIONS (8)
  - Pneumoperitoneum [Recovering/Resolving]
  - Abdominal pain [Unknown]
  - Freezing phenomenon [Not Recovered/Not Resolved]
  - Fall [Recovered/Resolved]
  - Device issue [Recovered/Resolved]
  - Stoma site infection [Recovered/Resolved]
  - Dyskinesia [Not Recovered/Not Resolved]
  - Expired product administered [Recovered/Resolved]

NARRATIVE: CASE EVENT DATE: 2018
